FAERS Safety Report 19702857 (Version 1)
Quarter: 2021Q3

REPORT INFORMATION
  Report Type: Spontaneous
  Country: CA (occurrence: CA)
  Receive Date: 20210816
  Receipt Date: 20210816
  Transmission Date: 20211014
  Serious: Yes (Hospitalization)
  Sender: FDA-Public Use
  Company Number: CA-INGENUS PHARMACEUTICALS, LLC-2021INF000119

PATIENT

DRUGS (16)
  1. DEXAMETHASONE. [Suspect]
     Active Substance: DEXAMETHASONE
     Dosage: 3.4 MILLIGRAM, QD, DAYS 25?59
     Route: 065
  2. VINCRISTINE [Suspect]
     Active Substance: VINCRISTINE
     Indication: ACUTE LYMPHOCYTIC LEUKAEMIA
     Dosage: 1.7 MILLIGRAM, QD DAYS 4, 11, AND 25
     Route: 042
     Dates: start: 20210514
  3. DOXORUBICIN [Suspect]
     Active Substance: DOXORUBICIN
     Indication: ACUTE LYMPHOCYTIC LEUKAEMIA
     Dosage: 34 MILLIGRAM, QD DAYS 4 AND 5
     Route: 042
     Dates: start: 20210514
  4. CYTARABINE. [Suspect]
     Active Substance: CYTARABINE
     Indication: ACUTE LYMPHOCYTIC LEUKAEMIA
     Dosage: 40 MILLIGRAM, DAY 8
     Route: 037
     Dates: start: 20210514
  5. VINCRISTINE [Suspect]
     Active Substance: VINCRISTINE
     Dosage: 1.65 MILLIGARM (DAYS 15 AND 22)
     Route: 042
     Dates: start: 20210629
  6. DEXAMETHASONE. [Suspect]
     Active Substance: DEXAMETHASONE
     Indication: ACUTE LYMPHOCYTIC LEUKAEMIA
     Dosage: 3.4 MILLIGRAM, BID, DAYS 4?24 (ORAL OR IV)
     Route: 065
     Dates: start: 20210514
  7. MELATONINE [Concomitant]
     Active Substance: MELATONIN
     Indication: PRODUCT USED FOR UNKNOWN INDICATION
     Dosage: UNK
     Route: 065
     Dates: start: 20210704
  8. CYCLOPHOSPHAMIDE. [Suspect]
     Active Substance: CYCLOPHOSPHAMIDE
     Indication: ACUTE LYMPHOCYTIC LEUKAEMIA
     Dosage: 1100 MILLIGRAM (DAY 1)
     Route: 042
     Dates: start: 20210615
  9. PEGASPARGASE [Suspect]
     Active Substance: PEGASPARGASE
     Dosage: 2760 IU (DAY 16)
     Route: 042
     Dates: start: 20210630
  10. MERCAPTOPURINE. [Suspect]
     Active Substance: MERCAPTOPURINE
     Indication: ACUTE LYMPHOCYTIC LEUKAEMIA
     Dosage: 69 MILLIGRAM, QD
     Route: 048
     Dates: start: 20210615
  11. DEXRAZOXANE. [Suspect]
     Active Substance: DEXRAZOXANE
     Indication: ACUTE LYMPHOCYTIC LEUKAEMIA
     Dosage: 340 MILLIGRAM, QD
     Route: 042
     Dates: start: 20210514
  12. CYTARABINE. [Suspect]
     Active Substance: CYTARABINE
     Dosage: 82.5 MILLIGRAM (DAYS 1?4 AND 8?11)
     Route: 042
     Dates: start: 20210615
  13. METHOTREXATE. [Suspect]
     Active Substance: METHOTREXATE
     Indication: ACUTE LYMPHOCYTIC LEUKAEMIA
     Dosage: 15 MILLIGRAM WEEKLY
     Route: 037
     Dates: start: 20210615
  14. RUXOLITINIB [Suspect]
     Active Substance: RUXOLITINIB
     Indication: ACUTE LYMPHOCYTIC LEUKAEMIA
     Dosage: 55 MILLIGRAM, BID
     Route: 048
     Dates: start: 20210615
  15. DEXAMETHASONE. [Suspect]
     Active Substance: DEXAMETHASONE
     Dosage: 1.7 MILLIGRAM, QD, DAYS 30?32
     Route: 065
  16. PEGASPARGASE [Suspect]
     Active Substance: PEGASPARGASE
     Indication: ACUTE LYMPHOCYTIC LEUKAEMIA
     Dosage: 2850 IU,DAY 6
     Route: 042
     Dates: start: 20210514

REACTIONS (1)
  - Neutropenic colitis [Recovered/Resolved]

NARRATIVE: CASE EVENT DATE: 20210708
